FAERS Safety Report 4751787-X (Version None)
Quarter: 2005Q3

REPORT INFORMATION
  Report Type: 
  Country: None (occurrence: None)
  Receive Date: 20050823
  Receipt Date: 20050823
  Transmission Date: 20060218
  Serious: No
  Sender: FDA-Public Use
  Company Number: None

PATIENT
  Age: 19 Year
  Sex: Male

DRUGS (1)
  1. MORPHINE [Suspect]
     Dosage: 4 MG X 1 IV
     Route: 042

REACTIONS (2)
  - RASH [None]
  - URTICARIA [None]
